FAERS Safety Report 9095614 (Version 2)
Quarter: 2013Q2

REPORT INFORMATION
  Report Type: Spontaneous
  Country: FR (occurrence: FR)
  Receive Date: 20130219
  Receipt Date: 20130517
  Transmission Date: 20140414
  Serious: Yes (Hospitalization, Other)
  Sender: FDA-Public Use
  Company Number: FR-BRISTOL-MYERS SQUIBB COMPANY-17387523

PATIENT
  Age: 75 Year
  Sex: Female
  Weight: 75 kg

DRUGS (4)
  1. ELIQUIS [Suspect]
     Indication: DEEP VEIN THROMBOSIS
     Dosage: 2 TABS/DAY
     Route: 048
  2. LOVENOX [Concomitant]
     Dosage: DOSE VALUE:60MG
  3. DOLIPRANE [Concomitant]
     Route: 048
  4. ACUPAN [Concomitant]
     Indication: PAIN
     Route: 048

REACTIONS (1)
  - Phlebitis [Not Recovered/Not Resolved]
